FAERS Safety Report 23443691 (Version 3)
Quarter: 2024Q1

REPORT INFORMATION
  Report Type: Spontaneous
  Country: GB (occurrence: GB)
  Receive Date: 20240125
  Receipt Date: 20240216
  Transmission Date: 20240410
  Serious: Yes (Hospitalization, Other)
  Sender: FDA-Public Use
  Company Number: GB-MYLANLABS-2023M1136742

PATIENT
  Age: 57 Year
  Sex: Male

DRUGS (3)
  1. CLOZARIL [Suspect]
     Active Substance: CLOZAPINE
     Indication: Schizophrenia
     Dosage: UNK
     Route: 048
     Dates: start: 20020903
  2. CLOZARIL [Suspect]
     Active Substance: CLOZAPINE
     Dosage: 700 MILLIGRAM, QD
     Route: 048
     Dates: start: 20230613
  3. CLOZARIL [Suspect]
     Active Substance: CLOZAPINE
     Dosage: UNK, BID (300MG IN THE MORNING AND 400MG AT NIGHT)
     Route: 048

REACTIONS (5)
  - Chest pain [Unknown]
  - Lower respiratory tract infection [Unknown]
  - Differential white blood cell count abnormal [Not Recovered/Not Resolved]
  - Monocytosis [Unknown]
  - Constipation [Unknown]

NARRATIVE: CASE EVENT DATE: 20231220
